FAERS Safety Report 11397802 (Version 2)
Quarter: 2016Q1

REPORT INFORMATION
  Report Type: Spontaneous
  Country: US (occurrence: US)
  Receive Date: 20150819
  Receipt Date: 20160106
  Transmission Date: 20160525
  Serious: Yes (Life-Threatening, Hospitalization, Other)
  Sender: FDA-Public Use
  Company Number: US-B.I. PHARMACEUTICALS,INC./RIDGEFIELD-2015-BI-44479BP

PATIENT
  Age: 85 Year
  Sex: Female
  Weight: 68.49 kg

DRUGS (3)
  1. TRADJENTA [Suspect]
     Active Substance: LINAGLIPTIN
     Indication: DIABETES MELLITUS
     Dosage: 5 MG
     Route: 048
     Dates: start: 20141223, end: 20150120
  2. TRADJENTA [Suspect]
     Active Substance: LINAGLIPTIN
     Dosage: 5 MG
     Route: 048
     Dates: start: 20150209, end: 20150319
  3. PRANDIN [Concomitant]
     Active Substance: REPAGLINIDE
     Indication: PRODUCT USED FOR UNKNOWN INDICATION
     Route: 065

REACTIONS (2)
  - Pancreatitis [Recovered/Resolved]
  - Pancreatic carcinoma [Recovered/Resolved with Sequelae]

NARRATIVE: CASE EVENT DATE: 20150319
